FAERS Safety Report 16775677 (Version 2)
Quarter: 2019Q3

REPORT INFORMATION
  Report Type: Report from Study
  Country: GB (occurrence: GB)
  Receive Date: 20190905
  Receipt Date: 20190916
  Transmission Date: 20191005
  Serious: Yes (Death, Other)
  Sender: FDA-Public Use
  Company Number: GB-BRISTOL-MYERS SQUIBB COMPANY-BMS-2019-086697

PATIENT
  Age: 72 Year
  Sex: Male

DRUGS (2)
  1. BLINDED PLACEBO [Suspect]
     Active Substance: INVESTIGATIONAL PRODUCT
     Indication: MESOTHELIOMA
     Dosage: 240 MILLIGRAM
     Route: 065
     Dates: start: 20190426, end: 20190705
  2. BLINDED NIVOLUMAB [Suspect]
     Active Substance: NIVOLUMAB
     Indication: MESOTHELIOMA
     Dosage: 240 MILLIGRAM
     Route: 065
     Dates: start: 20190426, end: 20190705

REACTIONS (2)
  - Malignant neoplasm progression [Fatal]
  - Lower respiratory tract infection [Fatal]
